FAERS Safety Report 12267774 (Version 1)
Quarter: 2016Q2

REPORT INFORMATION
  Report Type: Spontaneous
  Country: US (occurrence: US)
  Receive Date: 20160414
  Receipt Date: 20160414
  Transmission Date: 20160815
  Serious: Yes (Other)
  Sender: FDA-Public Use
  Company Number: US-BAYER-2016-065475

PATIENT
  Age: 6 Year
  Sex: Female
  Weight: 63.49 kg

DRUGS (10)
  1. CALCIUM [CALCIUM] [Concomitant]
     Active Substance: CALCIUM
  2. MIRALAX [Suspect]
     Active Substance: POLYETHYLENE GLYCOL 3350
     Indication: CONSTIPATION
     Dosage: 17 TO 34 GRAMS, QD
     Route: 048
     Dates: start: 2007
  3. VITAMIN C [Concomitant]
     Active Substance: ASCORBIC ACID
  4. LEVOTHYROXINE. [Concomitant]
     Active Substance: LEVOTHYROXINE
  5. LAMOTRIGINE. [Concomitant]
     Active Substance: LAMOTRIGINE
  6. MULTIVITAMIN [Concomitant]
     Active Substance: VITAMINS
  7. GARLIC. [Concomitant]
     Active Substance: GARLIC
  8. MAGNESIUM [Concomitant]
     Active Substance: MAGNESIUM
  9. FISH OIL [Concomitant]
     Active Substance: FISH OIL
  10. BORAGE OIL [Concomitant]
     Active Substance: BORAGE OIL

REACTIONS (16)
  - Cold sweat [None]
  - Pupils unequal [None]
  - Rash [None]
  - Nervous system disorder [None]
  - Seizure [None]
  - Chills [None]
  - Neurological symptom [None]
  - Product use issue [None]
  - Skin mass [None]
  - Infection susceptibility increased [None]
  - Petit mal epilepsy [None]
  - Urticaria [None]
  - Malabsorption [None]
  - Peripheral coldness [None]
  - Flushing [None]
  - Aphasia [None]

NARRATIVE: CASE EVENT DATE: 2007
